FAERS Safety Report 26123672 (Version 1)
Quarter: 2025Q4

REPORT INFORMATION
  Report Type: Report from Study
  Country: EG (occurrence: EG)
  Receive Date: 20251205
  Receipt Date: 20251205
  Transmission Date: 20260118
  Serious: Yes (Other)
  Sender: ROCHE
  Company Number: EG-ROCHE-10000448495

PATIENT
  Age: 21 Year
  Sex: Female
  Weight: 96 kg

DRUGS (1)
  1. OCREVUS [Suspect]
     Active Substance: OCRELIZUMAB
     Indication: Multiple sclerosis
     Route: 042
     Dates: start: 20251112

REACTIONS (11)
  - Loss of consciousness [Recovered/Resolved]
  - Infusion related reaction [Recovered/Resolved]
  - Dyspnoea [Recovered/Resolved]
  - Pyrexia [Not Recovered/Not Resolved]
  - Vomiting [Recovered/Resolved]
  - Oropharyngeal pain [Recovered/Resolved]
  - Pain in extremity [Recovered/Resolved]
  - Axillary pain [Not Recovered/Not Resolved]
  - Nasopharyngitis [Not Recovered/Not Resolved]
  - Pain [Not Recovered/Not Resolved]
  - Neck pain [Recovered/Resolved]

NARRATIVE: CASE EVENT DATE: 20251112
